FAERS Safety Report 8977091 (Version 1)
Quarter: 2012Q4

REPORT INFORMATION
  Report Type: 
  Country: PL (occurrence: PL)
  Receive Date: 20121219
  Receipt Date: 20121219
  Transmission Date: 20130627
  Serious: Yes (Death)
  Sender: FDA-Public Use
  Company Number: PL-CELGENEUS-129-50794-12120971

PATIENT

DRUGS (1)
  1. VIDAZA [Suspect]
     Indication: DRUG USE FOR UNKNOWN INDICATION
     Route: 065

REACTIONS (1)
  - Death [Fatal]
